FAERS Safety Report 21654999 (Version 1)
Quarter: 2022Q4

REPORT INFORMATION
  Report Type: Spontaneous
  Country: US (occurrence: US)
  Receive Date: 20221129
  Receipt Date: 20221129
  Transmission Date: 20230112
  Serious: Yes (Other)
  Sender: FDA-Public Use
  Company Number: US-LA JOLLA PHARMACEUTICAL COMPANY-0000367

PATIENT

DRUGS (8)
  1. GIAPREZA [Suspect]
     Active Substance: ANGIOTENSIN II
     Dosage: 30 NG/KG/MIN
  2. EPINEPHRINE [Concomitant]
     Active Substance: EPINEPHRINE
  3. VASOPRESSIN [Concomitant]
     Active Substance: VASOPRESSIN
     Dosage: 0.04 UNITS/MIN
  4. NOREPINEPHRINE [Concomitant]
     Active Substance: NOREPINEPHRINE
     Dosage: 0.18 ?G/KG/MIN
  5. NOREPINEPHRINE [Concomitant]
     Active Substance: NOREPINEPHRINE
     Dosage: 0.3 ?G/KG/MIN
  6. MILRINONE [Concomitant]
     Active Substance: MILRINONE
  7. EPOPROSTENOL [Concomitant]
     Active Substance: EPOPROSTENOL
  8. HYDROXOCOBALAMIN [Concomitant]
     Active Substance: HYDROXOCOBALAMIN

REACTIONS (1)
  - Thrombocytopenia [Recovered/Resolved]
